FAERS Safety Report 22621775 (Version 6)
Quarter: 2024Q2

REPORT INFORMATION
  Report Type: Spontaneous
  Country: US (occurrence: US)
  Receive Date: 20230620
  Receipt Date: 20240509
  Transmission Date: 20240716
  Serious: No
  Sender: FDA-Public Use
  Company Number: US-VERTEX PHARMACEUTICALS-2023-008694

PATIENT
  Age: 5 Year
  Sex: Female

DRUGS (6)
  1. TRIKAFTA [Suspect]
     Active Substance: ELEXACAFTOR\IVACAFTOR\TEZACAFTOR
     Indication: Cystic fibrosis
     Dosage: GRANULES, 100MG ELEXA/ 50MG TEZA/ 75MG IVA AND 75MG IVA AT FULL PEDIATRIC DOSE
     Route: 048
     Dates: start: 20230530
  2. ALBUTEROL [Concomitant]
     Active Substance: ALBUTEROL
  3. PULMOZYME [Concomitant]
     Active Substance: DORNASE ALFA
  4. CLARITIN [Concomitant]
     Active Substance: LORATADINE
  5. VITAMIN D3 [Concomitant]
     Active Substance: CHOLECALCIFEROL
  6. FLONASE [Concomitant]
     Active Substance: FLUTICASONE PROPIONATE

REACTIONS (13)
  - Energy increased [Recovering/Resolving]
  - Psychomotor hyperactivity [Recovering/Resolving]
  - Emotional disorder [Recovering/Resolving]
  - Feeling abnormal [Recovering/Resolving]
  - Fatigue [Recovering/Resolving]
  - Insomnia [Recovering/Resolving]
  - Mental disorder [Recovering/Resolving]
  - Middle insomnia [Recovering/Resolving]
  - Fear [Recovering/Resolving]
  - Productive cough [Unknown]
  - Cough [Unknown]
  - Nasal congestion [Unknown]
  - Abdominal pain [Unknown]

NARRATIVE: CASE EVENT DATE: 20230606
